FAERS Safety Report 7084116-X (Version None)
Quarter: 2010Q4

REPORT INFORMATION
  Report Type: 
  Country: None (occurrence: None)
  Receive Date: 20101026
  Receipt Date: 20101011
  Transmission Date: 20110411
  Serious: Yes (Other)
  Sender: FDA-Public Use
  Company Number: AUR-APL-2010-02603

PATIENT
  Age: 80 Year
  Sex: Female
  Weight: 84 kg

DRUGS (5)
  1. METFORMIN HCL [Suspect]
     Indication: DIABETES MELLITUS
     Dosage: 500MG, BID, ORAL
     Route: 048
     Dates: start: 20090101
  2. XALATAN EYE DROPS, SOLUTION [Suspect]
     Indication: CATARACT OPERATION
     Dosage: 1 DROP OU, QD, OCULAR
     Dates: start: 20090101
  3. AMARYL [Concomitant]
  4. LANTUS [Concomitant]
  5. ACETAMINOPHEN [Concomitant]

REACTIONS (2)
  - INCORRECT DOSE ADMINISTERED [None]
  - TREMOR [None]
